FAERS Safety Report 8486894-1 (Version None)
Quarter: 2012Q3

REPORT INFORMATION
  Report Type: 
  Country: None (occurrence: None)
  Receive Date: 20120704
  Receipt Date: 20120702
  Transmission Date: 20120928
  Serious: Yes (Death)
  Sender: FDA-Public Use
  Company Number: IT-ELI_LILLY_AND_COMPANY-IT201207000573

PATIENT

DRUGS (2)
  1. ALIMTA [Suspect]
     Indication: LUNG ADENOCARCINOMA
     Dosage: UNK UNK, UNKNOWN
     Route: 042
     Dates: start: 20120321, end: 20120410
  2. CISPLATIN [Concomitant]
     Dosage: UNK UNK, UNKNOWN
     Route: 042
     Dates: start: 20120321, end: 20120410

REACTIONS (1)
  - FEBRILE NEUTROPENIA [None]
